FAERS Safety Report 24210439 (Version 1)
Quarter: 2024Q3

REPORT INFORMATION
  Report Type: Spontaneous
  Country: IT (occurrence: IT)
  Receive Date: 20240814
  Receipt Date: 20240814
  Transmission Date: 20241017
  Serious: Yes (Other)
  Sender: DR REDDYS
  Company Number: IT-GERMAN-LIT/ITA/24/0011807

PATIENT

DRUGS (1)
  1. SORAFENIB [Suspect]
     Active Substance: SORAFENIB
     Indication: Acute myeloid leukaemia

REACTIONS (2)
  - Malignant neoplasm progression [Unknown]
  - Drug ineffective for unapproved indication [Unknown]
